FAERS Safety Report 5442281-1 (Version None)
Quarter: 2007Q3

REPORT INFORMATION
  Report Type: 
  Country: None (occurrence: None)
  Receive Date: 20070904
  Receipt Date: 20070823
  Transmission Date: 20080115
  Serious: Yes (Hospitalization)
  Sender: FDA-Public Use
  Company Number: JP-PFIZER INC-2007062203

PATIENT
  Sex: Male
  Weight: 69.7 kg

DRUGS (10)
  1. SU-011,248 [Suspect]
     Indication: RENAL CELL CARCINOMA STAGE UNSPECIFIED
     Route: 048
     Dates: start: 20060328, end: 20060412
  2. SU-011,248 [Suspect]
     Route: 048
     Dates: start: 20060417, end: 20060831
  3. SU-011,248 [Suspect]
     Route: 048
  4. CANDESARTAN CILEXETIL [Concomitant]
     Route: 048
  5. REBAMIPIDE [Concomitant]
     Route: 048
  6. LANSOPRAZOLE [Concomitant]
     Route: 048
  7. DIMETICONE [Concomitant]
     Route: 048
  8. LEVOTHYROXINE SODIUM [Concomitant]
     Route: 048
  9. BERIZYM [Concomitant]
     Route: 048
  10. FERROUS SULFATE TAB [Concomitant]
     Route: 048
     Dates: start: 20070709, end: 20070724

REACTIONS (3)
  - ANAEMIA [None]
  - HYPERCALCAEMIA [None]
  - NAUSEA [None]
